FAERS Safety Report 9156705 (Version 1)
Quarter: 2013Q1

REPORT INFORMATION
  Report Type: Spontaneous
  Country: US (occurrence: None)
  Receive Date: 20130308
  Receipt Date: 20130308
  Transmission Date: 20140127
  Serious: Yes (Hospitalization)
  Sender: FDA-Public Use
  Company Number: None

PATIENT
  Sex: Male
  Weight: 65.8 kg

DRUGS (1)
  1. CISPLATIN [Suspect]

REACTIONS (12)
  - Dyspepsia [None]
  - Tachycardia [None]
  - Chronic obstructive pulmonary disease [None]
  - Emphysema [None]
  - Anxiety [None]
  - Fear [None]
  - Constipation [None]
  - Abdominal distension [None]
  - Nausea [None]
  - Weight decreased [None]
  - Hypophagia [None]
  - Pain [None]
